FAERS Safety Report 9292901 (Version 1)
Quarter: 2013Q2

REPORT INFORMATION
  Report Type: Spontaneous
  Country: DE (occurrence: DE)
  Receive Date: 20130516
  Receipt Date: 20130516
  Transmission Date: 20140414
  Serious: Yes (Life-Threatening)
  Sender: FDA-Public Use
  Company Number: DE-PFIZER INC-2005110400

PATIENT
  Age: 85 Year
  Sex: Female

DRUGS (5)
  1. PANTOZOL [Suspect]
     Dosage: 80 MG, DAILY
     Route: 042
     Dates: start: 20050519, end: 20050601
  2. NEXIUM [Suspect]
     Indication: GASTROOESOPHAGEAL REFLUX DISEASE
     Route: 048
     Dates: start: 20050602, end: 20050605
  3. METOCLOPRAMIDE HYDROCHLORIDE [Concomitant]
     Route: 042
     Dates: start: 20050530, end: 20050603
  4. LIPOFUNDIN [Concomitant]
     Route: 065
  5. AMINOMIX [Concomitant]
     Route: 065

REACTIONS (1)
  - Pancytopenia [Recovered/Resolved]
